FAERS Safety Report 16076589 (Version 1)
Quarter: 2019Q1

REPORT INFORMATION
  Report Type: Spontaneous
  Country: US (occurrence: US)
  Receive Date: 20190214
  Receipt Date: 20190214
  Transmission Date: 20190418
  Serious: No
  Sender: FDA-Public Use
  Company Number: None

PATIENT
  Age: 77 Year
  Sex: Male

DRUGS (1)
  1. BETOPTIC [Suspect]
     Active Substance: BETAXOLOL HYDROCHLORIDE
     Indication: GLAUCOMA
     Dosage: STRENGTH SOL 0.5% OP
     Dates: start: 201901

REACTIONS (1)
  - Anxiety [None]

NARRATIVE: CASE EVENT DATE: 20190214
